FAERS Safety Report 14436864 (Version 1)
Quarter: 2018Q1

REPORT INFORMATION
  Report Type: Spontaneous
  Country: CN (occurrence: CN)
  Receive Date: 20180125
  Receipt Date: 20180125
  Transmission Date: 20180509
  Serious: Yes (Hospitalization)
  Sender: FDA-Public Use
  Company Number: CN-LUPIN PHARMACEUTICALS INC.-2018-00278

PATIENT
  Age: 83 Year
  Sex: Male

DRUGS (4)
  1. BIFIDOBACTERIUM BIFIDUM [Concomitant]
     Active Substance: BIFIDOBACTERIUM BIFIDUM
     Indication: GASTROINTESTINAL DISORDER
  2. DOXYCYCLINE. [Suspect]
     Active Substance: DOXYCYCLINE
     Indication: PNEUMONIA
     Dosage: 0.2 G, QD
     Route: 042
  3. CEFOPERAZONE [Interacting]
     Active Substance: CEFOPERAZONE
     Indication: PNEUMONIA
     Dosage: 2 G (Q8H)
     Route: 042
  4. ETIMICIN SULFATE [Concomitant]
     Active Substance: ETIMICIN SULFATE
     Indication: PRODUCT USED FOR UNKNOWN INDICATION
     Dosage: 0.2 G, QD
     Route: 042

REACTIONS (4)
  - Prothrombin time [Recovering/Resolving]
  - Activated partial thromboplastin time prolonged [Recovering/Resolving]
  - Drug interaction [Unknown]
  - Prothrombin time ratio [Recovering/Resolving]
